FAERS Safety Report 7623062-7 (Version None)
Quarter: 2011Q3

REPORT INFORMATION
  Report Type: 
  Country: None (occurrence: None)
  Receive Date: 20110720
  Receipt Date: 20110707
  Transmission Date: 20111222
  Serious: Yes (Death)
  Sender: FDA-Public Use
  Company Number: US-PFIZER INC-2010001268

PATIENT
  Age: 51 Year
  Sex: Male

DRUGS (6)
  1. VERAPAMIL HCL [Suspect]
     Dosage: UNK
     Route: 048
     Dates: end: 20080101
  2. LISINOPRIL [Suspect]
     Dosage: UNK
     Route: 048
     Dates: end: 20080101
  3. ENALAPRIL [Suspect]
     Dosage: UNK
     Route: 048
     Dates: end: 20080101
  4. LISINOPRIL [Suspect]
     Dosage: UNK
     Route: 048
     Dates: end: 20080101
  5. ETHANOL [Suspect]
     Dosage: UNK
     Route: 048
     Dates: end: 20080101
  6. TRAMADOL HCL [Suspect]
     Dosage: UNK
     Route: 048
     Dates: end: 20080101

REACTIONS (1)
  - COMPLETED SUICIDE [None]
